FAERS Safety Report 9379930 (Version 1)
Quarter: 2013Q3

REPORT INFORMATION
  Report Type: Spontaneous
  Country: US (occurrence: US)
  Receive Date: 20130702
  Receipt Date: 20130702
  Transmission Date: 20140515
  Serious: Yes (Other)
  Sender: FDA-Public Use
  Company Number: US-BAYER-2013-078488

PATIENT
  Age: 70 Year
  Sex: Female
  Weight: 61 kg

DRUGS (1)
  1. BAYER WOMEN^S LOW STRENGTH ASPIRIN REGIMEN [Suspect]
     Indication: ISCHAEMIC HEART DISEASE PROPHYLAXIS
     Dosage: 81 MG, UNK
     Route: 048
     Dates: start: 20130622, end: 20130623

REACTIONS (4)
  - Choking [Recovered/Resolved]
  - Foreign body [Recovered/Resolved]
  - Dysphagia [Recovered/Resolved]
  - Product size issue [Recovered/Resolved]
